FAERS Safety Report 15532524 (Version 2)
Quarter: 2018Q4

REPORT INFORMATION
  Report Type: Spontaneous
  Country: US (occurrence: US)
  Receive Date: 20181019
  Receipt Date: 20181030
  Transmission Date: 20190205
  Serious: No
  Sender: FDA-Public Use
  Company Number: US-SA-2018SA289858

PATIENT
  Sex: Female

DRUGS (8)
  1. ROSUVASTATIN CALCIUM. [Concomitant]
     Active Substance: ROSUVASTATIN CALCIUM
  2. CITALOPRAM [Concomitant]
     Active Substance: CITALOPRAM HYDROBROMIDE
  3. PRALUENT [Suspect]
     Active Substance: ALIROCUMAB
     Indication: HYPERLIPIDAEMIA
     Dosage: 75 MG, QOW
     Route: 058
     Dates: start: 201810
  4. FAMOTIDINE. [Concomitant]
     Active Substance: FAMOTIDINE
  5. PROLENSA [Concomitant]
     Active Substance: BROMFENAC SODIUM
  6. CLOPIDOGREL [Concomitant]
     Active Substance: CLOPIDOGREL BISULFATE
  7. DUREZOL [Concomitant]
     Active Substance: DIFLUPREDNATE
  8. ILEVRO [Concomitant]
     Active Substance: NEPAFENAC

REACTIONS (1)
  - Injection site bruising [Unknown]
